FAERS Safety Report 10041096 (Version 2)
Quarter: 2014Q2

REPORT INFORMATION
  Report Type: Spontaneous
  Country: JP (occurrence: JP)
  Receive Date: 20140327
  Receipt Date: 20140630
  Transmission Date: 20141212
  Serious: Yes (Other)
  Sender: FDA-Public Use
  Company Number: JP-ASTELLAS-2014JP002681

PATIENT
  Age: 38 Year
  Sex: Male

DRUGS (5)
  1. PROGRAF [Suspect]
     Indication: PROPHYLAXIS AGAINST GRAFT VERSUS HOST DISEASE
     Route: 065
  2. ATG                                /00575401/ [Concomitant]
     Indication: PROPHYLAXIS AGAINST GRAFT VERSUS HOST DISEASE
     Route: 065
  3. ENOCITABINE [Concomitant]
     Indication: MYELODYSPLASTIC SYNDROME
     Route: 065
  4. FLUDARABINE [Concomitant]
     Indication: PREMEDICATION
     Route: 065
  5. MELPHALAN [Concomitant]
     Indication: PREMEDICATION
     Route: 065

REACTIONS (3)
  - Acute graft versus host disease [Unknown]
  - Chronic graft versus host disease [Unknown]
  - Drug ineffective [Unknown]
